FAERS Safety Report 4385558-3 (Version None)
Quarter: 2004Q2

REPORT INFORMATION
  Report Type: 
  Country: None (occurrence: None)
  Receive Date: 20040622
  Receipt Date: 20040416
  Transmission Date: 20050107
  Serious: Yes (Other)
  Sender: FDA-Public Use
  Company Number: J200401932

PATIENT
  Age: 54 Year
  Sex: Male

DRUGS (8)
  1. MYSLEE          (ZOLPIDEM) [Suspect]
     Indication: INSOMNIA
     Dosage: 10MG/5MG, PO
     Route: 048
     Dates: start: 20040124, end: 20040206
  2. MYSLEE          (ZOLPIDEM) [Suspect]
     Indication: INSOMNIA
     Dosage: 10MG/5MG, PO
     Route: 048
     Dates: start: 20040207, end: 20040220
  3. PAXIL (PAROXETINE HYDROCHLORIDE HYDRATE) [Concomitant]
  4. ZYTEC (CETIRIZINE HYDROCHLORIDE) [Concomitant]
  5. GASMOTIN (MOSAPRIDE CITRATE) [Concomitant]
  6. LENDORM [Concomitant]
  7. SOLANEX (ALPRAZOLAM) [Concomitant]
  8. ROHYPNOL (FLUNITRAZEPAM) [Concomitant]

REACTIONS (2)
  - DEPRESSED LEVEL OF CONSCIOUSNESS [None]
  - SOMNOLENCE [None]
